FAERS Safety Report 19742292 (Version 1)
Quarter: 2021Q3

REPORT INFORMATION
  Report Type: Spontaneous
  Country: DE (occurrence: DE)
  Receive Date: 20210825
  Receipt Date: 20210825
  Transmission Date: 20211014
  Serious: Yes (Death, Hospitalization)
  Sender: FDA-Public Use
  Company Number: DE-ACCORD-236466

PATIENT
  Age: 60 Year
  Sex: Female
  Weight: 55 kg

DRUGS (17)
  1. PANTOPRAZOLE [Concomitant]
     Active Substance: PANTOPRAZOLE
     Dosage: 40 MG, 1?0?0?0, TABLETS
  2. TORASEMIDE [Concomitant]
     Active Substance: TORSEMIDE
     Dosage: 5 MG, 1?0?0?0, TABLETS
  3. CETUXIMAB. [Suspect]
     Active Substance: CETUXIMAB
     Indication: PRODUCT USED FOR UNKNOWN INDICATION
     Dosage: ACCORDING TO THE SCHEME ON 22022021, INJECTION / INFUSION SOLUTION
  4. HYDROMORPHONE/HYDROMORPHONE HYDROCHLORIDE [Concomitant]
     Active Substance: HYDROMORPHONE
     Dosage: 4 MG, 1?0?1?0, PROLONGED?RELEASE TABLET
  5. PREGABALIN. [Concomitant]
     Active Substance: PREGABALIN
     Dosage: 100 MG, 1?0?1?0, CAPSULES
  6. MCP?1A PHARMA [Concomitant]
     Dosage: 8.91 MG, UP TO 3 TIMES DAILY, TABLETS
  7. METAMIZOLE SODIUM [Concomitant]
     Active Substance: METAMIZOLE SODIUM
     Dosage: 500 MG, 2?2?2?2, TABLETS
  8. CISPLATIN. [Suspect]
     Active Substance: CISPLATIN
     Indication: PRODUCT USED FOR UNKNOWN INDICATION
     Dosage: ACCORDING TO THE SCHEME ON 22022021, INJECTION / INFUSION SOLUTION
  9. FLUOROURACIL. [Suspect]
     Active Substance: FLUOROURACIL
     Indication: PRODUCT USED FOR UNKNOWN INDICATION
     Dosage: ACCORDING TO THE SCHEME ON 22022021, INJECTION / INFUSION SOLUTION
  10. MAGNESIUM VERLA [Concomitant]
     Active Substance: MAGNESIUM
     Dosage: 1?0?0?0, GRANULES, 300 MG APPLE
  11. FLUOR?VIGANTOL [Concomitant]
     Dosage: 1000 IU, 1?0?0?0, TABLETS
  12. FENTANYL. [Concomitant]
     Active Substance: FENTANYL
     Dosage: 200 MICROGRAM MAX 4 TIMES DAILY, ORODISPERSIBLE TABLETS
  13. BISACODYL. [Concomitant]
     Active Substance: BISACODYL
     Dosage: 10 MG, IF NECESSARY, SUPPOSITORIES
  14. ONDANSETRON [Concomitant]
     Active Substance: ONDANSETRON
     Dosage: 8 MG, UP TO 2 TIMES DAILY, TABLETS
  15. MOVICOL [Concomitant]
     Active Substance: POLYETHYLENE GLYCOL 3350\POTASSIUM CHLORIDE\SODIUM BICARBONATE\SODIUM CHLORIDE
     Dosage: 1?0?0?0, POWDER
  16. KALINOR [Concomitant]
     Dosage: 2.0057/ 0.78/ 0.78 MG, 1?1?1?0, TABLETS
  17. MIRTAZAPINE. [Concomitant]
     Active Substance: MIRTAZAPINE
     Dosage: 30 MG, 0?0?0?1, TABLETS

REACTIONS (4)
  - Nausea [Unknown]
  - Diarrhoea [Unknown]
  - General physical health deterioration [Unknown]
  - Vomiting [Unknown]
